FAERS Safety Report 16759137 (Version 3)
Quarter: 2020Q3

REPORT INFORMATION
  Report Type: Spontaneous
  Country: US (occurrence: US)
  Receive Date: 20190830
  Receipt Date: 20200827
  Transmission Date: 20201102
  Serious: Yes (Other)
  Sender: FDA-Public Use
  Company Number: US-GILEAD-2019-0425706

PATIENT
  Age: 55 Year
  Sex: Male

DRUGS (2)
  1. VIREAD [Suspect]
     Active Substance: TENOFOVIR DISOPROXIL FUMARATE
     Indication: HIV INFECTION
     Dosage: UNK
     Route: 048
     Dates: start: 2012
  2. TRUVADA [Suspect]
     Active Substance: EMTRICITABINE\TENOFOVIR DISOPROXIL FUMARATE
     Indication: HIV INFECTION
     Dosage: UNK
     Route: 048
     Dates: start: 2009, end: 2011

REACTIONS (14)
  - Anxiety [Unknown]
  - Stress fracture [Not Recovered/Not Resolved]
  - Multiple fractures [Unknown]
  - Neuropathy peripheral [Not Recovered/Not Resolved]
  - Pain [Unknown]
  - Osteonecrosis [Unknown]
  - Nephropathy [Not Recovered/Not Resolved]
  - Bone loss [Unknown]
  - Pathological fracture [Unknown]
  - Osteoporosis [Unknown]
  - Emotional distress [Unknown]
  - Economic problem [Unknown]
  - Bone density decreased [Unknown]
  - Anhedonia [Unknown]

NARRATIVE: CASE EVENT DATE: 201802
